FAERS Safety Report 8206565-6 (Version None)
Quarter: 2012Q1

REPORT INFORMATION
  Report Type: 
  Country: None (occurrence: None)
  Receive Date: 20120313
  Receipt Date: 20120309
  Transmission Date: 20120608
  Serious: Yes (Life-Threatening)
  Sender: FDA-Public Use
  Company Number: IT-ASTRAZENECA-2012SE10497

PATIENT
  Age: 33 Year
  Sex: Male

DRUGS (8)
  1. SEROQUEL [Suspect]
     Indication: PARANOIA
     Route: 048
     Dates: start: 20120124, end: 20120124
  2. SEROQUEL [Suspect]
     Indication: SCHIZOPHRENIA
     Route: 048
     Dates: start: 20120124, end: 20120124
  3. SEROQUEL [Suspect]
     Route: 048
     Dates: end: 20120124
  4. PRAMIPEXOLE DIHYDROCHLORIDE [Concomitant]
     Route: 048
     Dates: end: 20120124
  5. SEROQUEL [Suspect]
     Route: 048
     Dates: end: 20120124
  6. RISPERDAL [Suspect]
     Indication: PARANOIA
     Route: 048
     Dates: start: 20120124, end: 20120124
  7. IMODIUM [Concomitant]
     Indication: DIARRHOEA
     Dates: end: 20120124
  8. RISPERDAL [Suspect]
     Indication: SCHIZOPHRENIA
     Route: 048
     Dates: start: 20120124, end: 20120124

REACTIONS (1)
  - COMA [None]
